FAERS Safety Report 4898544-1 (Version None)
Quarter: 2006Q1

REPORT INFORMATION
  Report Type: 
  Country: None (occurrence: None)
  Receive Date: 20060130
  Receipt Date: 20060116
  Transmission Date: 20060701
  Serious: Yes (Hospitalization)
  Sender: FDA-Public Use
  Company Number: 2006011105

PATIENT
  Age: 2 Year
  Sex: Female

DRUGS (3)
  1. ZITHROMAX [Suspect]
     Indication: PYREXIA
     Dates: start: 20060101
  2. BENADRYL [Suspect]
     Indication: HYPERSENSITIVITY
     Dates: start: 20060101
  3. ACETAMINOPHEN [Concomitant]

REACTIONS (7)
  - ACCIDENTAL DRUG INTAKE BY CHILD [None]
  - ERYTHEMA [None]
  - GENERALISED OEDEMA [None]
  - INFLAMMATION [None]
  - PYREXIA [None]
  - RASH GENERALISED [None]
  - URTICARIA [None]
